FAERS Safety Report 6657183-2 (Version None)
Quarter: 2010Q1

REPORT INFORMATION
  Report Type: 
  Country: None (occurrence: None)
  Receive Date: 20100330
  Receipt Date: 20100322
  Transmission Date: 20100710
  Serious: Yes (Other)
  Sender: FDA-Public Use
  Company Number: CA-ASTRAZENECA-2010SE12769

PATIENT
  Age: 67 Year
  Sex: Male

DRUGS (7)
  1. SYMBICORT [Suspect]
     Indication: ASTHMA
     Route: 055
     Dates: start: 20060301
  2. CRESTOR [Suspect]
     Indication: BLOOD CHOLESTEROL INCREASED
     Route: 048
  3. OMEPRAZOLE [Concomitant]
  4. SYNTHROID [Concomitant]
  5. BISOPROLOL [Concomitant]
  6. BECLOMETHASONE DIPROPIONATE [Concomitant]
  7. LORAZEPAM [Concomitant]

REACTIONS (2)
  - ASTHMA [None]
  - DRUG INEFFECTIVE [None]
